FAERS Safety Report 5428940-5 (Version None)
Quarter: 2007Q3

REPORT INFORMATION
  Report Type: 
  Country: None (occurrence: None)
  Receive Date: 20070827
  Receipt Date: 20070813
  Transmission Date: 20080115
  Serious: Yes (Life-Threatening)
  Sender: FDA-Public Use
  Company Number: 2006P1000329

PATIENT
  Age: 78 Year
  Sex: Male
  Weight: 78 kg

DRUGS (8)
  1. RETEPLASE (RETEPLASE) [Suspect]
     Indication: ACUTE MYOCARDIAL INFARCTION
     Dosage: 5 IU; X1; IV
     Route: 042
     Dates: start: 20060104, end: 20060104
  2. ABCIXIMAB (ABCIXIMAB) [Suspect]
     Indication: ACUTE MYOCARDIAL INFARCTION
     Dosage: 9.8 MG; X1; IV
     Route: 042
     Dates: start: 20060104, end: 20060104
  3. ASPIRIN [Concomitant]
  4. FUROSEMIDE [Concomitant]
  5. BISOPROLOL [Concomitant]
  6. CLOPIDOGREL [Concomitant]
  7. ATORVASTATIN [Concomitant]
  8. LANSOPRAZOLE [Concomitant]

REACTIONS (6)
  - ARTERIAL INJURY [None]
  - CORONARY ARTERY OCCLUSION [None]
  - IATROGENIC INJURY [None]
  - PERICARDIAL HAEMORRHAGE [None]
  - PROCEDURAL COMPLICATION [None]
  - VENTRICULAR TACHYCARDIA [None]
